FAERS Safety Report 8641762 (Version 6)
Quarter: 2013Q1

REPORT INFORMATION
  Report Type: Spontaneous
  Country: US (occurrence: US)
  Receive Date: 20120628
  Receipt Date: 20130114
  Transmission Date: 20140127
  Serious: Yes (Hospitalization, Disabling, Other)
  Sender: FDA-Public Use
  Company Number: US-MERCK-1206USA03585

PATIENT
  Sex: 0

DRUGS (17)
  1. FOSAMAX [Suspect]
     Indication: OSTEOPENIA
     Dosage: 70 MG, UNK
     Route: 048
     Dates: start: 2005, end: 20051031
  2. FOSAMAX [Suspect]
     Indication: OSTEOPOROSIS
     Dosage: 70 MG, UNK
     Route: 048
     Dates: start: 20070219, end: 20080202
  3. FOSAMAX [Suspect]
     Dosage: 40 MG, UNK
     Route: 048
  4. FOSAMAX PLUS D [Suspect]
     Indication: OSTEOPENIA
     Dosage: 70 MG/2800IU, UNK
     Route: 048
     Dates: start: 20060110, end: 20070122
  5. FOSAMAX PLUS D [Suspect]
     Indication: OSTEOPOROSIS
  6. ALENDRONATE SODIUM [Suspect]
     Indication: OSTEOPENIA
     Dosage: 70 MG, UNK
     Route: 048
     Dates: start: 20080611
  7. ALENDRONATE SODIUM [Suspect]
     Indication: OSTEOPOROSIS
  8. ACTONEL [Suspect]
     Dates: start: 200810, end: 201009
  9. ENBREL [Concomitant]
     Indication: RHEUMATOID ARTHRITIS
     Dosage: 0.5 ML, QW
     Route: 048
  10. METHOTREXATE [Concomitant]
     Indication: RHEUMATOID ARTHRITIS
     Dosage: UNK, QW
  11. CALCIUM (UNSPECIFIED) [Concomitant]
     Dosage: 600 MG, BID
     Route: 048
     Dates: start: 2000
  12. VITAMIN D (UNSPECIFIED) [Concomitant]
  13. VITAMINS (UNSPECIFIED) [Concomitant]
     Dosage: UNK UNK, QD
     Route: 048
     Dates: start: 2005
  14. VITAMINS (UNSPECIFIED) [Concomitant]
     Dosage: UNK
  15. PROZAC [Concomitant]
     Indication: DEPRESSION
     Dosage: 40 MG, QAM
     Route: 048
  16. LORAZEPAM [Concomitant]
     Indication: ANXIETY
  17. FOLIC ACID [Concomitant]
     Dosage: 1 MG, QD
     Route: 048

REACTIONS (40)
  - Low turnover osteopathy [Not Recovered/Not Resolved]
  - Open reduction of fracture [Unknown]
  - Fall [Unknown]
  - Fall [Unknown]
  - Femur fracture [Recovering/Resolving]
  - Open reduction of fracture [Unknown]
  - Confusion postoperative [Recovered/Resolved]
  - Blood pressure systolic increased [Unknown]
  - Basal cell carcinoma [Unknown]
  - Femur fracture [Recovering/Resolving]
  - Hypersensitivity [Unknown]
  - Bipolar disorder [Unknown]
  - Intervertebral disc degeneration [Unknown]
  - Rotator cuff syndrome [Unknown]
  - Weight increased [Unknown]
  - Adrenal insufficiency [Unknown]
  - Bunion operation [Unknown]
  - Hysterectomy [Unknown]
  - Appendicectomy [Unknown]
  - Polymyalgia rheumatica [Unknown]
  - Spinal osteoarthritis [Unknown]
  - Hypertension [Unknown]
  - Fibromyalgia [Unknown]
  - Skin disorder [Unknown]
  - Lip repair [Unknown]
  - Jaw operation [Unknown]
  - Skin disorder [Unknown]
  - Surgery [Unknown]
  - Abnormal behaviour [Unknown]
  - Drug dependence [Unknown]
  - Lumbar spinal stenosis [Unknown]
  - Fall [Unknown]
  - Skin mass [Unknown]
  - Osteoarthritis [Unknown]
  - Drug hypersensitivity [Unknown]
  - Nausea [Unknown]
  - Back pain [Unknown]
  - Alopecia [Unknown]
  - Myalgia [Unknown]
  - Pain in extremity [Unknown]
